FAERS Safety Report 4898880-9 (Version None)
Quarter: 2006Q1

REPORT INFORMATION
  Report Type: 
  Country: None (occurrence: None)
  Receive Date: 20060104
  Receipt Date: 20050824
  Transmission Date: 20060701
  Serious: Yes (Hospitalization)
  Sender: FDA-Public Use
  Company Number: A03200501356

PATIENT
  Age: 56 Year
  Sex: Female

DRUGS (3)
  1. ELOXATIN [Suspect]
     Indication: GALLBLADDER CANCER
     Dosage: 215 MG Q2W - INTRAVENOUS NOS
     Route: 042
     Dates: start: 20050504, end: 20050504
  2. ELOXATIN [Suspect]
  3. GEMZAR [Suspect]
     Indication: GALLBLADDER CANCER
     Dosage: 2150 MG Q2W - INTRAVENOUS NOS
     Route: 042
     Dates: start: 20050503, end: 20050503

REACTIONS (3)
  - INJECTION SITE EXTRAVASATION [None]
  - INJECTION SITE INFECTION [None]
  - INJECTION SITE SWELLING [None]
